FAERS Safety Report 13160474 (Version 1)
Quarter: 2017Q1

REPORT INFORMATION
  Report Type: Spontaneous
  Country: US (occurrence: US)
  Receive Date: 20170128
  Receipt Date: 20170128
  Transmission Date: 20170428
  Serious: No
  Sender: FDA-Public Use
  Company Number: US-009507513-1701USA007409

PATIENT
  Age: 30 Year
  Sex: Female
  Weight: 55.7 kg

DRUGS (1)
  1. NEXPLANON [Suspect]
     Active Substance: ETONOGESTREL
     Dosage: 1 DF, UNK IN THE LEFT ARM
     Dates: start: 20150331, end: 20170111

REACTIONS (5)
  - Complication associated with device [Recovered/Resolved]
  - Migration of implanted drug [Recovered/Resolved]
  - Menstruation irregular [Unknown]
  - Surgery [Unknown]
  - Device difficult to use [Recovered/Resolved]

NARRATIVE: CASE EVENT DATE: 20170111
